FAERS Safety Report 23287315 (Version 1)
Quarter: 2023Q4

REPORT INFORMATION
  Report Type: Spontaneous
  Country: PL (occurrence: PL)
  Receive Date: 20231212
  Receipt Date: 20231212
  Transmission Date: 20240110
  Serious: Yes (Hospitalization, Other)
  Sender: FDA-Public Use
  Company Number: PL-ABBVIE-5531241

PATIENT
  Age: 75 Year
  Sex: Female

DRUGS (6)
  1. VENETOCLAX [Suspect]
     Active Substance: VENETOCLAX
     Indication: Acute myeloid leukaemia
     Dosage: 400 MILLIGRAM
     Route: 048
     Dates: start: 2023
  2. VENETOCLAX [Suspect]
     Active Substance: VENETOCLAX
     Indication: Acute myeloid leukaemia
     Route: 048
     Dates: start: 20230913
  3. AMPICILLIN [Concomitant]
     Active Substance: AMPICILLIN
     Indication: Enterococcal infection
     Dates: start: 202308
  4. AZACITIDINE [Concomitant]
     Active Substance: AZACITIDINE
     Indication: Acute myeloid leukaemia
     Dosage: 130 MILLIGRAM
     Dates: start: 20231009, end: 20231015
  5. AZACITIDINE [Concomitant]
     Active Substance: AZACITIDINE
     Indication: Acute myeloid leukaemia
     Dates: start: 20230913
  6. MEROPENEM [Concomitant]
     Active Substance: MEROPENEM
     Indication: Escherichia infection
     Dates: start: 20230831

REACTIONS (15)
  - Pulmonary embolism [Unknown]
  - Atelectasis [Unknown]
  - Dysuria [Unknown]
  - Splenic infarction [Unknown]
  - Pleural effusion [Unknown]
  - Platelet count increased [Recovered/Resolved]
  - Urinary tract infection [Unknown]
  - Klebsiella test positive [Unknown]
  - Renal vein thrombosis [Unknown]
  - Aspartate aminotransferase increased [Unknown]
  - Neutrophil count decreased [Recovered/Resolved]
  - Pulmonary artery thrombosis [Unknown]
  - Alanine aminotransferase increased [Unknown]
  - Dyspnoea [Unknown]
  - COVID-19 [Unknown]

NARRATIVE: CASE EVENT DATE: 20230920
